FAERS Safety Report 12768429 (Version 2)
Quarter: 2016Q4

REPORT INFORMATION
  Report Type: Spontaneous
  Country: US (occurrence: US)
  Receive Date: 20160921
  Receipt Date: 20161005
  Transmission Date: 20170207
  Serious: Yes (Hospitalization)
  Sender: FDA-Public Use
  Company Number: US-RELYPSA-RLY2016002514

PATIENT
  Sex: Female

DRUGS (14)
  1. VITAMIN D2 [Concomitant]
     Active Substance: ERGOCALCIFEROL
  2. KAYEXALATE [Concomitant]
     Active Substance: SODIUM POLYSTYRENE SULFONATE
  3. NIFEDIPINE. [Concomitant]
     Active Substance: NIFEDIPINE
  4. CALCIUM ACETATE. [Concomitant]
     Active Substance: CALCIUM ACETATE
  5. VITAMIN A                          /00056001/ [Concomitant]
     Active Substance: RETINOL
  6. COREG [Concomitant]
     Active Substance: CARVEDILOL
  7. RANEXA [Concomitant]
     Active Substance: RANOLAZINE
  8. VELTASSA [Suspect]
     Active Substance: PATIROMER
     Indication: HYPERKALAEMIA
     Dosage: 8.4 G, QD
     Route: 048
     Dates: start: 2016
  9. DULCOLAX (BISACODYL) [Concomitant]
     Active Substance: BISACODYL
  10. PRAVACHOL [Concomitant]
     Active Substance: PRAVASTATIN SODIUM
  11. NEPHRO-VITE                        /01801401/ [Concomitant]
  12. TYLENOL [Concomitant]
     Active Substance: ACETAMINOPHEN
  13. LASIX [Concomitant]
     Active Substance: FUROSEMIDE
  14. TRAMADOL HCL [Concomitant]
     Active Substance: TRAMADOL HYDROCHLORIDE

REACTIONS (1)
  - Intestinal obstruction [Recovering/Resolving]
